FAERS Safety Report 7801450-3 (Version None)
Quarter: 2011Q4

REPORT INFORMATION
  Report Type: 
  Country: None (occurrence: None)
  Receive Date: 20111006
  Receipt Date: 20111006
  Transmission Date: 20120403
  Serious: Yes (Hospitalization)
  Sender: FDA-Public Use
  Company Number: None

PATIENT
  Age: 73 Year
  Sex: Male
  Weight: 70 kg

DRUGS (23)
  1. DIGOXIN [Suspect]
     Indication: CORONARY ARTERY DISEASE
     Dosage: 0.25MG DAILY PO CHRONIC
     Route: 048
  2. IMODIUM [Concomitant]
  3. ROZEREM [Concomitant]
  4. DEXTROSE [Concomitant]
  5. ZOFRAN [Concomitant]
  6. SPIRONOLACTONE [Concomitant]
  7. CITALOPRAM [Concomitant]
  8. OXANDROLONE [Concomitant]
  9. LEVAQUIN [Concomitant]
  10. OXYCODONE HCL AND ACETAMINOPHEN [Concomitant]
  11. TYLENOL-500 [Concomitant]
  12. GLUCAGON [Concomitant]
  13. METHOCARBAMOL [Concomitant]
  14. RANITIDINE [Concomitant]
  15. AREDIA [Concomitant]
  16. TRICOR [Concomitant]
  17. VIT D3 [Concomitant]
  18. ATIVAN [Concomitant]
  19. ASPIRIN [Concomitant]
  20. VIT B12 [Concomitant]
  21. D50 [Concomitant]
  22. LIDODERM [Concomitant]
  23. TAB-A-VITE [Concomitant]

REACTIONS (1)
  - CARDIOACTIVE DRUG LEVEL INCREASED [None]
